FAERS Safety Report 16686641 (Version 1)
Quarter: 2019Q3

REPORT INFORMATION
  Report Type: Spontaneous
  Country: FR (occurrence: FR)
  Receive Date: 20190809
  Receipt Date: 20190809
  Transmission Date: 20191004
  Serious: Yes (Hospitalization)
  Sender: FDA-Public Use
  Company Number: FR-ZYDUS-039472

PATIENT
  Age: 89 Year
  Sex: Male
  Weight: 60 kg

DRUGS (13)
  1. AMIODARONE [Concomitant]
     Active Substance: AMIODARONE
  2. PRAVASTATIN. [Concomitant]
     Active Substance: PRAVASTATIN
  3. FUROSEMIDE. [Suspect]
     Active Substance: FUROSEMIDE
     Indication: MYOCARDIAL ISCHAEMIA
     Route: 048
     Dates: start: 201806, end: 20190627
  4. PARACETAMOL [Concomitant]
     Active Substance: ACETAMINOPHEN
  5. APIXABAN [Concomitant]
     Active Substance: APIXABAN
  6. LANSOPRAZOLE. [Suspect]
     Active Substance: LANSOPRAZOLE
     Indication: DYSPEPSIA
     Route: 048
     Dates: start: 2018, end: 20190627
  7. MACROGOL/MACROGOL STEARATE [Concomitant]
  8. FINASTERIDE. [Concomitant]
     Active Substance: FINASTERIDE
  9. AMLODIPINE/AMLODIPINE BESILATE/AMLODIPINE MALEATE/AMLODIPINE MESILATE [Concomitant]
  10. ULTIBRO BREEZHALER [Concomitant]
     Active Substance: GLYCOPYRRONIUM\INDACATEROL
  11. TAMSULOSIN/TAMSULOSIN HYDROCHLORIDE [Concomitant]
  12. RAMIPRIL. [Concomitant]
     Active Substance: RAMIPRIL
  13. POTASSIUM [Concomitant]
     Active Substance: POTASSIUM

REACTIONS (1)
  - Hyponatraemia [Recovered/Resolved]

NARRATIVE: CASE EVENT DATE: 20190627
